FAERS Safety Report 5877022-7 (Version None)
Quarter: 2008Q3

REPORT INFORMATION
  Report Type: 
  Country: None (occurrence: None)
  Receive Date: 20080910
  Receipt Date: 20080902
  Transmission Date: 20090109
  Serious: Yes (Other)
  Sender: FDA-Public Use
  Company Number: PHEH2008US04828

PATIENT
  Sex: Female
  Weight: 80.272 kg

DRUGS (6)
  1. RECLAST [Suspect]
     Indication: OSTEOPOROSIS
     Dosage: UNK, UNK
     Dates: start: 20080401
  2. VICODIN [Concomitant]
  3. LORAZEPAM [Concomitant]
  4. OXYGEN [Concomitant]
  5. POTASSIUM CHLORIDE [Concomitant]
  6. HERBAL PREPARATION [Concomitant]

REACTIONS (29)
  - ARTHRALGIA [None]
  - ASTHENIA [None]
  - BACK DISORDER [None]
  - BACK PAIN [None]
  - CHILLS [None]
  - CONSTIPATION [None]
  - DENTAL DISCOMFORT [None]
  - DEPRESSION [None]
  - DYSPNOEA [None]
  - FEELING ABNORMAL [None]
  - HEARING IMPAIRED [None]
  - HYPERTENSION [None]
  - HYPOAESTHESIA [None]
  - INJECTION SITE PAIN [None]
  - MOBILITY DECREASED [None]
  - MONOPLEGIA [None]
  - NEUROSIS [None]
  - OEDEMA PERIPHERAL [None]
  - PAIN [None]
  - PAIN IN EXTREMITY [None]
  - PAIN IN JAW [None]
  - PRURITUS [None]
  - PYREXIA [None]
  - RASH GENERALISED [None]
  - SENSATION OF HEAVINESS [None]
  - SKIN DISORDER [None]
  - SPEECH DISORDER [None]
  - URINARY INCONTINENCE [None]
  - VISUAL IMPAIRMENT [None]
